FAERS Safety Report 8606830 (Version 3)
Quarter: 2013Q4

REPORT INFORMATION
  Report Type: Spontaneous
  Country: US (occurrence: US)
  Receive Date: 20120611
  Receipt Date: 20131128
  Transmission Date: 20140711
  Serious: Yes (Hospitalization, Other)
  Sender: FDA-Public Use
  Company Number: US-ASTRAZENECA-2012SE35230

PATIENT
  Sex: Female
  Weight: 117.5 kg

DRUGS (29)
  1. NEXIUM [Suspect]
     Indication: GASTROINTESTINAL DISORDER
     Route: 048
  2. NEXIUM [Suspect]
     Indication: GASTROINTESTINAL DISORDER
     Route: 048
     Dates: start: 20040715
  3. PROTONIX [Concomitant]
     Indication: GASTROINTESTINAL DISORDER
     Dosage: DAILY
  4. DEXILANT [Concomitant]
     Indication: GASTROINTESTINAL DISORDER
  5. ZANTAC [Concomitant]
  6. TAGAMET [Concomitant]
  7. PEPTO BISMOL [Concomitant]
     Dosage: OCCASIONALLY
  8. ROLAIDS [Concomitant]
     Indication: PAIN
     Dosage: DAILY
  9. ESTRADIOL [Concomitant]
     Indication: HORMONE REPLACEMENT THERAPY
  10. DILTIAZEM [Concomitant]
     Indication: CARDIOVASCULAR DISORDER
  11. METFORMIN [Concomitant]
     Indication: DIABETES MELLITUS
  12. FLOVENT [Concomitant]
     Indication: ASTHMA
  13. CARVEDILOL [Concomitant]
     Indication: CARDIOVASCULAR DISORDER
  14. VITAMINS [Concomitant]
  15. IBUPROFEN [Concomitant]
  16. LISINOPRIL [Concomitant]
     Indication: BLOOD PRESSURE
  17. ONDANSETRON [Concomitant]
     Indication: NAUSEA
  18. ATORVASTATIN [Concomitant]
     Indication: BLOOD CHOLESTEROL ABNORMAL
  19. METOCLOPRAMIDE [Concomitant]
     Indication: GASTROINTESTINAL DISORDER
     Dates: start: 20040715
  20. CYMBAHA [Concomitant]
  21. INSULIN [Concomitant]
     Indication: DIABETES MELLITUS
  22. LIPITOR [Concomitant]
     Dates: start: 20040601
  23. ACTOS [Concomitant]
     Dates: start: 20040601
  24. DIFLUCAN [Concomitant]
     Dates: start: 20040609
  25. POTASSIUM CL [Concomitant]
     Dates: start: 20040615
  26. URSODIOL [Concomitant]
     Dates: start: 20040621
  27. ROBINUL FORTE [Concomitant]
     Dates: start: 20040621
  28. OXAZEPAM [Concomitant]
     Dates: start: 20040721
  29. GABITRIL [Concomitant]
     Dates: start: 20040805

REACTIONS (15)
  - Convulsion [Unknown]
  - Uterine cancer [Unknown]
  - Infection [Unknown]
  - Carpal tunnel syndrome [Unknown]
  - Osteoporosis [Unknown]
  - Foot fracture [Unknown]
  - Osteopenia [Unknown]
  - Hepatic cirrhosis [Unknown]
  - Bone loss [Unknown]
  - Angina pectoris [Unknown]
  - Arthritis [Unknown]
  - Cataract [Unknown]
  - Chronic obstructive pulmonary disease [Unknown]
  - Rheumatoid arthritis [Unknown]
  - Depression [Unknown]
